FAERS Safety Report 5870657-7 (Version None)
Quarter: 2008Q3

REPORT INFORMATION
  Report Type: 
  Country: None (occurrence: None)
  Receive Date: 20080902
  Receipt Date: 20080821
  Transmission Date: 20090109
  Serious: Yes (Hospitalization)
  Sender: FDA-Public Use
  Company Number: 15651

PATIENT
  Age: 59 Year
  Sex: Female
  Weight: 88.4514 kg

DRUGS (6)
  1. MORPHINE SULFATE [Suspect]
     Indication: PAIN IN EXTREMITY
     Dosage: 60MG BID ORALLY
     Route: 048
     Dates: start: 20060101, end: 20080212
  2. LUNESTA [Concomitant]
  3. LEXAPRO [Concomitant]
  4. LEVOTHYROXIDE [Concomitant]
  5. VERAPAMIL [Concomitant]
  6. LYRICA [Concomitant]

REACTIONS (7)
  - CARDIAC ARREST [None]
  - COMA [None]
  - CONVULSION [None]
  - PHARMACEUTICAL PRODUCT COMPLAINT [None]
  - PNEUMONIA [None]
  - RENAL FAILURE [None]
  - UNRESPONSIVE TO STIMULI [None]
